FAERS Safety Report 5790058-X (Version None)
Quarter: 2008Q2

REPORT INFORMATION
  Report Type: 
  Country: None (occurrence: None)
  Receive Date: 20080626
  Receipt Date: 20080624
  Transmission Date: 20081010
  Serious: Yes (Hospitalization)
  Sender: FDA-Public Use
  Company Number: JP-BRISTOL-MYERS SQUIBB COMPANY-14188072

PATIENT
  Age: 75 Year
  Sex: Female

DRUGS (19)
  1. GATIFLOXACIN [Suspect]
     Indication: PNEUMONIA
     Dosage: 400 MG DIVIDED INTO B.I.D
     Route: 048
     Dates: start: 20080324, end: 20080326
  2. DISOPYRAMIDE [Suspect]
     Indication: VENTRICULAR EXTRASYSTOLES
     Route: 048
     Dates: end: 20080326
  3. RIZE [Concomitant]
     Route: 048
  4. TERNELIN [Concomitant]
     Route: 048
  5. FAMOTIDINE [Concomitant]
     Dosage: POWDER FORMULATION
     Route: 048
  6. MUCOSOLVAN [Concomitant]
     Route: 048
  7. THEOLONG [Concomitant]
     Route: 048
  8. TENORMIN [Concomitant]
     Route: 048
  9. BLOPRESS [Concomitant]
     Route: 048
  10. SIMVASTATIN [Concomitant]
     Route: 048
  11. CARDENALIN [Concomitant]
     Route: 048
  12. SINGULAIR [Concomitant]
     Route: 048
  13. PREDNISOLONE [Concomitant]
     Route: 048
  14. CYANOCOBALAMIN [Concomitant]
     Route: 048
  15. LOXONIN [Concomitant]
     Route: 048
  16. DEPAS [Concomitant]
     Route: 048
  17. ALENDRONATE SODIUM [Concomitant]
     Route: 048
  18. ALOSENN [Concomitant]
     Route: 048
  19. NORVASC [Concomitant]
     Route: 048

REACTIONS (1)
  - HYPOGLYCAEMIA [None]
